FAERS Safety Report 8585132-9 (Version None)
Quarter: 2012Q3

REPORT INFORMATION
  Report Type: 
  Country: None (occurrence: None)
  Receive Date: 20120810
  Receipt Date: 20120730
  Transmission Date: 20120928
  Serious: Yes (Hospitalization, Other)
  Sender: FDA-Public Use
  Company Number: US-GENZYME-LEUK-1000295

PATIENT
  Age: 82 Year
  Sex: Male

DRUGS (3)
  1. SULFAMETHOPRIM [Concomitant]
     Indication: PRODUCT USED FOR UNKNOWN INDICATION
     Dosage: UNK
     Route: 065
  2. IPILIMUMAB [Suspect]
     Indication: MALIGNANT MELANOMA
     Dosage: 10 MG/KG, QD ON DAY 1OF A 21 DAY CYCLE
     Route: 042
     Dates: start: 20110421, end: 20110624
  3. LEUKINE [Suspect]
     Indication: MALIGNANT MELANOMA
     Dosage: 250 MCG, QD ON DAYS1-14 OF A 21 DAY CYCLE
     Route: 058
     Dates: start: 20110421, end: 20110707

REACTIONS (3)
  - HAEMATOCHEZIA [None]
  - COLITIS [None]
  - DIARRHOEA [None]
